FAERS Safety Report 19375436 (Version 2)
Quarter: 2021Q3

REPORT INFORMATION
  Report Type: Spontaneous
  Country: PT (occurrence: PT)
  Receive Date: 20210604
  Receipt Date: 20210702
  Transmission Date: 20211014
  Serious: Yes (Other)
  Sender: FDA-Public Use
  Company Number: PT-GILEAD-2021-0533094

PATIENT
  Age: 29 Year
  Sex: Male

DRUGS (1)
  1. TRUVADA [Suspect]
     Active Substance: EMTRICITABINE\TENOFOVIR DISOPROXIL FUMARATE
     Indication: PROPHYLAXIS AGAINST HIV INFECTION
     Route: 065

REACTIONS (8)
  - HIV infection [Unknown]
  - Mouth ulceration [Unknown]
  - Treatment noncompliance [Unknown]
  - Neurosyphilis [Unknown]
  - Drug resistance [Unknown]
  - Tertiary syphilis [Unknown]
  - Neoplasm malignant [Unknown]
  - Anogenital warts [Unknown]

NARRATIVE: CASE EVENT DATE: 2020
